FAERS Safety Report 11553793 (Version 1)
Quarter: 2015Q3

REPORT INFORMATION
  Report Type: Spontaneous
  Country: US (occurrence: US)
  Receive Date: 20150903
  Receipt Date: 20150903
  Transmission Date: 20151125
  Serious: No
  Sender: FDA-Public Use
  Company Number: US-ELI_LILLY_AND_COMPANY-US201007005976

PATIENT
  Age: 72 Year
  Sex: Male

DRUGS (8)
  1. AVANDIA [Concomitant]
     Active Substance: ROSIGLITAZONE MALEATE
  2. LANTUS [Concomitant]
     Active Substance: INSULIN GLARGINE
  3. ZETIA [Concomitant]
     Active Substance: EZETIMIBE
  4. HUMALOG [Suspect]
     Active Substance: INSULIN LISPRO
     Indication: DIABETES MELLITUS
     Dosage: UNK, AS NEEDED
  5. HUMALOG [Suspect]
     Active Substance: INSULIN LISPRO
     Dosage: UNK, AS NEEDED
  6. JANUVIA [Concomitant]
     Active Substance: SITAGLIPTIN PHOSPHATE
  7. GLYBURIDE. [Concomitant]
     Active Substance: GLYBURIDE
  8. LIPITOR [Concomitant]
     Active Substance: ATORVASTATIN CALCIUM

REACTIONS (5)
  - Expired product administered [Unknown]
  - Drug dispensing error [Unknown]
  - Blood glucose increased [Recovered/Resolved]
  - Glycosylated haemoglobin increased [Unknown]
  - Incorrect dose administered [Unknown]
